FAERS Safety Report 5632344-X (Version None)
Quarter: 2008Q1

REPORT INFORMATION
  Report Type: 
  Country: None (occurrence: None)
  Receive Date: 20080220
  Receipt Date: 20080215
  Transmission Date: 20080703
  Serious: Yes (Other)
  Sender: FDA-Public Use
  Company Number: JP-AVENTIS-200810505JP

PATIENT
  Age: 39 Year
  Sex: Female

DRUGS (2)
  1. LASIX [Suspect]
     Route: 048
     Dates: start: 20040601, end: 20040601
  2. UNKNOWN DRUG [Suspect]

REACTIONS (1)
  - TOXIC EPIDERMAL NECROLYSIS [None]
